FAERS Safety Report 23869294 (Version 1)
Quarter: 2024Q2

REPORT INFORMATION
  Report Type: Spontaneous
  Country: IN (occurrence: IN)
  Receive Date: 20240517
  Receipt Date: 20240517
  Transmission Date: 20240716
  Serious: Yes (Death, Life-Threatening, Hospitalization, Other)
  Sender: FDA-Public Use
  Company Number: IN-NAPPMUNDI-GBR-2024-0116695

PATIENT
  Age: 11 Year
  Sex: Female
  Weight: 39.5 kg

DRUGS (13)
  1. METHYLPHENIDATE HYDROCHLORIDE [Suspect]
     Active Substance: METHYLPHENIDATE HYDROCHLORIDE
     Indication: Behavioural therapy
     Dosage: 10 MILLIGRAM, BID (TWICE DAILY)
     Route: 065
  2. HYDROCORTISONE [Suspect]
     Active Substance: HYDROCORTISONE
     Indication: Product used for unknown indication
     Dosage: 2.5 MILLIGRAM, TID (THRICE DAILY)
     Route: 065
  3. HYDROCORTISONE [Suspect]
     Active Substance: HYDROCORTISONE
     Dosage: 50 MILLIGRAM ON THE MORNING OF THE SURGERY
     Route: 042
  4. DESMOPRESSIN [Suspect]
     Active Substance: DESMOPRESSIN
     Indication: Product used for unknown indication
     Dosage: 0.1 MILLIGRAM
     Route: 065
  5. THYROXINE [Suspect]
     Active Substance: LEVOTHYROXINE
     Indication: Product used for unknown indication
     Dosage: 100 MICROGRAM, DAILY (ONCE DAILY)
     Route: 065
  6. RISPERIDONE [Suspect]
     Active Substance: RISPERIDONE
     Indication: Behavioural therapy
     Dosage: 0.5 MILLIGRAM, TID (THRICE DAILY)
     Route: 065
  7. LEVETIRACETAM [Suspect]
     Active Substance: LEVETIRACETAM
     Indication: Product used for unknown indication
     Dosage: 250 MILLIGRAM, DAILY (ONCE DAILY)
     Route: 065
  8. FENTANYL [Suspect]
     Active Substance: FENTANYL\FENTANYL CITRATE
     Indication: Anaesthesia
     Dosage: UNK
     Route: 065
  9. PROPOFOL [Suspect]
     Active Substance: PROPOFOL
     Indication: Anaesthesia
     Dosage: UNK
     Route: 065
  10. VECURONIUM [Suspect]
     Active Substance: VECURONIUM BROMIDE
     Indication: Anaesthesia
     Dosage: UNK
     Route: 065
  11. SEVOFLURANE [Suspect]
     Active Substance: SEVOFLURANE
     Indication: Anaesthesia
     Dosage: UNK
     Route: 065
  12. MEPHENTERMINE [Suspect]
     Active Substance: MEPHENTERMINE
     Indication: Hypotension
     Dosage: 9 MILLIGRAM IN DIVIDED DOSES
     Route: 065
  13. SODIUM BICARBONATE [Suspect]
     Active Substance: SODIUM BICARBONATE
     Indication: Metabolic acidosis
     Dosage: UNK
     Route: 065

REACTIONS (4)
  - Pancreatitis necrotising [Fatal]
  - Acute respiratory distress syndrome [Fatal]
  - Cardiac arrest [Fatal]
  - Brain stem syndrome [Fatal]
